FAERS Safety Report 15652202 (Version 1)
Quarter: 2018Q4

REPORT INFORMATION
  Report Type: Report from Study
  Country: PE (occurrence: PE)
  Receive Date: 20181123
  Receipt Date: 20181123
  Transmission Date: 20190205
  Serious: Yes (Death)
  Sender: FDA-Public Use
  Company Number: PE-SEATTLE GENETICS-2018SGN02995

PATIENT
  Age: 29 Year
  Sex: Male

DRUGS (1)
  1. BRENTUXIMAB VEDOTIN-MPI [Suspect]
     Active Substance: BRENTUXIMAB VEDOTIN
     Indication: HODGKIN^S DISEASE
     Dosage: 175 MG, UNK
     Route: 042
     Dates: start: 20181106, end: 20181106

REACTIONS (4)
  - Death [Fatal]
  - Nausea [Unknown]
  - Pain [Unknown]
  - Abdominal pain [Unknown]

NARRATIVE: CASE EVENT DATE: 20181119
